FAERS Safety Report 11259846 (Version 1)
Quarter: 2015Q3

REPORT INFORMATION
  Report Type: Spontaneous
  Country: US (occurrence: None)
  Receive Date: 20150709
  Receipt Date: 20150709
  Transmission Date: 20151125
  Serious: Yes (Hospitalization)
  Sender: FDA-Public Use
  Company Number: None

PATIENT
  Age: 60 Year
  Sex: Female

DRUGS (10)
  1. SENOKOT [Concomitant]
     Active Substance: SENNOSIDES
  2. PREVACID [Concomitant]
     Active Substance: LANSOPRAZOLE
  3. ASPIRIN. [Concomitant]
     Active Substance: ASPIRIN
  4. VALCYTE [Concomitant]
     Active Substance: VALGANCICLOVIR HYDROCHLORIDE
  5. BACTRIM [Concomitant]
     Active Substance: SULFAMETHOXAZOLE\TRIMETHOPRIM
  6. COLACE [Concomitant]
     Active Substance: DOCUSATE SODIUM
  7. PROGRAF [Concomitant]
     Active Substance: TACROLIMUS\TACROLIMUS ANHYDROUS
  8. ZOFRAN [Concomitant]
     Active Substance: ONDANSETRON HYDROCHLORIDE
  9. ARTHROTEC [Suspect]
     Active Substance: DICLOFENAC SODIUM\MISOPROSTOL
     Indication: ARTHRITIS
     Dates: start: 2012, end: 20140507
  10. CELLCEPT [Concomitant]
     Active Substance: MYCOPHENOLATE MOFETIL\MYCOPHENOLATE MOFETIL HYDROCHLORIDE

REACTIONS (11)
  - Portal hypertension [None]
  - Drug-induced liver injury [None]
  - Malaise [None]
  - Acute hepatic failure [None]
  - Hepatic cirrhosis [None]
  - Fatigue [None]
  - Pruritus [None]
  - Hepatic necrosis [None]
  - Dry mouth [None]
  - Liver transplant [None]
  - Hepatitis acute [None]

NARRATIVE: CASE EVENT DATE: 20140509
